FAERS Safety Report 11280346 (Version 1)
Quarter: 2015Q3

REPORT INFORMATION
  Report Type: Spontaneous
  Country: US (occurrence: None)
  Receive Date: 20150716
  Receipt Date: 20150716
  Transmission Date: 20151125
  Serious: Yes (Disabling)
  Sender: FDA-Public Use
  Company Number: None

PATIENT
  Age: 37 Year
  Sex: Female
  Weight: 77.11 kg

DRUGS (5)
  1. MONISTAT [Suspect]
     Active Substance: MICONAZOLE NITRATE
     Indication: FUNGAL INFECTION
     Route: 067
     Dates: start: 20150706, end: 20150706
  2. MULTIVITAMIN [Concomitant]
     Active Substance: VITAMINS
  3. MELATIONIN [Concomitant]
  4. FISH OIL [Concomitant]
     Active Substance: FISH OIL
  5. VITAMIN D [Concomitant]
     Active Substance: CHOLECALCIFEROL

REACTIONS (8)
  - Vulvovaginal burning sensation [None]
  - Vaginal exfoliation [None]
  - Vulvovaginal pruritus [None]
  - Vaginal haemorrhage [None]
  - Muscle spasms [None]
  - Vaginal infection [None]
  - Hypersensitivity [None]
  - Vulvovaginal swelling [None]

NARRATIVE: CASE EVENT DATE: 20150706
